FAERS Safety Report 16531840 (Version 2)
Quarter: 2019Q3

REPORT INFORMATION
  Report Type: Report from Study
  Country: US (occurrence: US)
  Receive Date: 20190705
  Receipt Date: 20190718
  Transmission Date: 20191004
  Serious: Yes (Death, Life-Threatening, Other)
  Sender: FDA-Public Use
  Company Number: PHHY2019US152257

PATIENT
  Age: 71 Year
  Sex: Male

DRUGS (6)
  1. KYMRIAH [Suspect]
     Active Substance: TISAGENLECLEUCEL
     Indication: DIFFUSE LARGE B-CELL LYMPHOMA
     Dosage: UNK UNK, ONCE/SINGLE
     Route: 041
     Dates: start: 2018
  2. FLUDARABINE [Concomitant]
     Active Substance: FLUDARABINE PHOSPHATE
     Indication: CHEMOTHERAPY
     Route: 065
  3. CYCLOPHOSPHAMIDE. [Concomitant]
     Active Substance: CYCLOPHOSPHAMIDE
     Indication: CHEMOTHERAPY
     Route: 065
  4. R CHOP [Concomitant]
     Active Substance: CYCLOPHOSPHAMIDE\DOXORUBICIN\PREDNISONE\RITUXIMAB\VINCRISTINE
     Indication: CHEMOTHERAPY
     Route: 065
  5. R EPOCH [Concomitant]
     Active Substance: CYCLOPHOSPHAMIDE\DOXORUBICIN\ETOPOSIDE\PREDNISONE\RITUXIMAB\VINCRISTINE
     Indication: CHEMOTHERAPY
     Route: 065
  6. RICE [Concomitant]
     Active Substance: BROWN RICE\RICE
     Indication: CHEMOTHERAPY
     Route: 065

REACTIONS (19)
  - Platelet count decreased [Fatal]
  - Hypotension [Unknown]
  - Aphasia [Unknown]
  - Staphylococcal infection [Unknown]
  - Hypogammaglobulinaemia [Unknown]
  - Diffuse large B-cell lymphoma [Fatal]
  - Malignant neoplasm progression [Fatal]
  - Epstein-Barr virus infection [Fatal]
  - Haematocrit decreased [Unknown]
  - Haemoglobin decreased [Unknown]
  - Cytokine release syndrome [Unknown]
  - Mucormycosis [Unknown]
  - Human herpesvirus 6 infection [Fatal]
  - Hypoxia [Unknown]
  - Neurotoxicity [Unknown]
  - Depressed level of consciousness [Unknown]
  - Pyrexia [Unknown]
  - White blood cell count decreased [Unknown]
  - Aspergillus infection [Unknown]
